FAERS Safety Report 4409356-7 (Version None)
Quarter: 2004Q3

REPORT INFORMATION
  Report Type: 
  Country: None (occurrence: None)
  Receive Date: 20040722
  Receipt Date: 20040713
  Transmission Date: 20050211
  Serious: Yes (Hospitalization, Other)
  Sender: FDA-Public Use
  Company Number: 2004047431

PATIENT
  Sex: Male
  Weight: 97.5234 kg

DRUGS (11)
  1. TIKOSYN [Suspect]
     Indication: ATRIAL FIBRILLATION
     Dosage: 1000 MCG (500 MCG, 2 IN 1 D) ORAL
     Route: 048
     Dates: start: 20030211
  2. DILTIAZEM [Concomitant]
  3. LOSARTAN POTASSIUM [Concomitant]
  4. LISINOPRIL [Concomitant]
  5. WARFARIN SODIUM [Concomitant]
  6. OMEPRAZOLE [Concomitant]
  7. ROFECOXIB [Concomitant]
  8. SIMVASTATIN [Concomitant]
  9. ALPRAZOLAM [Concomitant]
  10. HYDROCODONE [Concomitant]
  11. MULTIVITAMIN [Concomitant]

REACTIONS (10)
  - ASTHENIA [None]
  - ATRIAL FIBRILLATION [None]
  - BLOOD PRESSURE INCREASED [None]
  - CONDITION AGGRAVATED [None]
  - FEELING ABNORMAL [None]
  - FULL BLOOD COUNT DECREASED [None]
  - GASTROENTERITIS VIRAL [None]
  - HYPERHIDROSIS [None]
  - POLYMYALGIA RHEUMATICA [None]
  - WEIGHT DECREASED [None]
